FAERS Safety Report 6634806-5 (Version None)
Quarter: 2010Q1

REPORT INFORMATION
  Report Type: 
  Country: None (occurrence: None)
  Receive Date: 20100315
  Receipt Date: 20100305
  Transmission Date: 20100710
  Serious: Yes (Other)
  Sender: FDA-Public Use
  Company Number: JP-PFIZER INC-2010030262

PATIENT
  Age: 66 Year
  Sex: Female

DRUGS (1)
  1. CARDENALIN [Suspect]
     Dosage: 3 MG, 3X/DAY
     Route: 048

REACTIONS (1)
  - AGRANULOCYTOSIS [None]
